FAERS Safety Report 4874270-X (Version None)
Quarter: 2006Q1

REPORT INFORMATION
  Report Type: 
  Country: None (occurrence: None)
  Receive Date: 20060104
  Receipt Date: 20060104
  Transmission Date: 20060701
  Serious: Yes (Hospitalization)
  Sender: FDA-Public Use
  Company Number: None

PATIENT
  Age: 79 Year
  Sex: Male
  Weight: 61.6892 kg

DRUGS (1)
  1. BEVACIZUMAB, 15 MG/KG [Suspect]
     Dosage: 15 MG/KG. 21 DAYS IV
     Route: 042

REACTIONS (6)
  - DUODENAL ULCER PERFORATION [None]
  - HYPOTENSION [None]
  - LUNG CANCER METASTATIC [None]
  - MALIGNANT NEOPLASM PROGRESSION [None]
  - METASTASES TO BONE [None]
  - PATHOLOGICAL FRACTURE [None]
